FAERS Safety Report 20119523 (Version 1)
Quarter: 2021Q4

REPORT INFORMATION
  Report Type: Spontaneous
  Country: US (occurrence: None)
  Receive Date: 20211126
  Receipt Date: 20211126
  Transmission Date: 20220303
  Serious: No
  Sender: FDA-Public Use
  Company Number: US-Eisai Medical Research-EC-2021-103500

PATIENT
  Sex: Female

DRUGS (1)
  1. HALAVEN [Suspect]
     Active Substance: ERIBULIN MESYLATE
     Indication: Bone cancer metastatic
     Dosage: DOSE UNKNOWN
     Route: 041
     Dates: start: 20211110

REACTIONS (2)
  - Stomatitis [Not Recovered/Not Resolved]
  - Pharyngeal ulceration [Not Recovered/Not Resolved]

NARRATIVE: CASE EVENT DATE: 20211101
